FAERS Safety Report 14514156 (Version 1)
Quarter: 2018Q1

REPORT INFORMATION
  Report Type: Report from Study
  Country: US (occurrence: US)
  Receive Date: 20180209
  Receipt Date: 20180209
  Transmission Date: 20180509
  Serious: Yes (Death)
  Sender: FDA-Public Use
  Company Number: US-PFIZER INC-2018054718

PATIENT
  Age: 58 Year
  Sex: Female

DRUGS (2)
  1. CYTARABINE. [Suspect]
     Active Substance: CYTARABINE
     Indication: ACUTE MYELOID LEUKAEMIA
     Dosage: 100 MG/M2, CONTINUOUS INFUSION ON DAYS 1-7
  2. VOSAROXIN [Suspect]
     Active Substance: VOSAROXIN
     Indication: ACUTE MYELOID LEUKAEMIA
     Dosage: ON DAYS 1 AND 4
     Route: 042

REACTIONS (1)
  - Neutropenic colitis [Fatal]
